FAERS Safety Report 17544131 (Version 1)
Quarter: 2020Q1

REPORT INFORMATION
  Report Type: Spontaneous
  Country: US (occurrence: US)
  Receive Date: 20200316
  Receipt Date: 20200316
  Transmission Date: 20200409
  Serious: No
  Sender: FDA-Public Use
  Company Number: US-MYLANLABS-2020M1024658

PATIENT
  Sex: Female

DRUGS (1)
  1. CROMOLYN SODIUM, USP ORAL CONCENTRATE [Suspect]
     Active Substance: CROMOLYN SODIUM
     Indication: PRODUCT USED FOR UNKNOWN INDICATION
     Dosage: UNK

REACTIONS (2)
  - Expired product administered [Unknown]
  - No adverse event [Unknown]
